FAERS Safety Report 7956814-4 (Version None)
Quarter: 2011Q4

REPORT INFORMATION
  Report Type: 
  Country: None (occurrence: None)
  Receive Date: 20111201
  Receipt Date: 20111124
  Transmission Date: 20120403
  Serious: Yes (Other)
  Sender: FDA-Public Use
  Company Number: AUR-APL-2011-05934

PATIENT
  Age: 21 Year

DRUGS (2)
  1. ABILIFY [Suspect]
     Indication: PRODUCT USED FOR UNKNOWN INDICATION
     Dosage: (30 MG), UNKNOWN
  2. MIRTAZAPINE [Suspect]
     Indication: PRODUCT USED FOR UNKNOWN INDICATION
     Dosage: (30 MG), UNKNOWN

REACTIONS (1)
  - DEEP VEIN THROMBOSIS [None]
